FAERS Safety Report 6857284-X (Version None)
Quarter: 2010Q3

REPORT INFORMATION
  Report Type: 
  Country: None (occurrence: None)
  Receive Date: 20100719
  Receipt Date: 20100707
  Transmission Date: 20110219
  Serious: Yes (Other)
  Sender: FDA-Public Use
  Company Number: JP-PFIZER INC-2010079142

PATIENT
  Age: 62 Year
  Sex: Male

DRUGS (9)
  1. XALATAN [Suspect]
     Indication: OPEN ANGLE GLAUCOMA
     Dosage: 1 GTT, 1X/DAY
     Route: 047
  2. TRUSOPT [Suspect]
     Indication: OPEN ANGLE GLAUCOMA
     Dosage: 3 DROPS/DAY
     Route: 047
  3. TIMOPTOL-XE [Suspect]
     Indication: OPEN ANGLE GLAUCOMA
     Dosage: 1 GTT, 1X/DAY
     Route: 047
  4. BEZATOL [Concomitant]
     Indication: HYPERLIPIDAEMIA
     Dosage: 400 MG, UNK
     Route: 048
  5. BAYMYCARD [Concomitant]
     Indication: HYPERTENSION
     Dosage: 5 MG, UNK
     Route: 048
  6. ZESTRIL [Concomitant]
     Indication: HYPERTENSION
     Dosage: 10 MG, UNK
     Route: 048
  7. TAKEPRON [Concomitant]
     Dosage: 30 MG, UNK
     Route: 048
  8. RINDERON [Concomitant]
     Dosage: UNK
     Route: 047
  9. MOXIFLOXACIN HYDROCHLORIDE [Concomitant]
     Dosage: UNK
     Route: 047

REACTIONS (3)
  - GLAUCOMA SURGERY [None]
  - INTRAOCULAR PRESSURE DECREASED [None]
  - INTRAOCULAR PRESSURE INCREASED [None]
